FAERS Safety Report 25037460 (Version 1)
Quarter: 2025Q1

REPORT INFORMATION
  Report Type: Report from Study
  Country: US (occurrence: US)
  Receive Date: 20250304
  Receipt Date: 20250304
  Transmission Date: 20250408
  Serious: Yes (Other)
  Sender: ABBVIE
  Company Number: US-ABBVIE-6153253

PATIENT
  Sex: Female

DRUGS (1)
  1. RINVOQ [Suspect]
     Active Substance: UPADACITINIB
     Indication: Dermatitis atopic
     Dosage: 15 MG
     Route: 048
     Dates: start: 202308

REACTIONS (5)
  - Vulvovaginal burning sensation [Unknown]
  - Vaginal infection [Unknown]
  - Papilloma [Unknown]
  - Immunodeficiency [Unknown]
  - Acne [Unknown]
